FAERS Safety Report 16527750 (Version 1)
Quarter: 2019Q3

REPORT INFORMATION
  Report Type: Spontaneous
  Country: LK (occurrence: LK)
  Receive Date: 20190703
  Receipt Date: 20190703
  Transmission Date: 20191004
  Serious: Yes (Other)
  Sender: FDA-Public Use
  Company Number: PHHY2019LK150195

PATIENT
  Age: 46 Year
  Sex: Female

DRUGS (2)
  1. PREDNISOLONE. [Suspect]
     Active Substance: PREDNISOLONE
     Indication: TUBERCULOID LEPROSY
     Route: 048
  2. EFAVIRENZ. [Concomitant]
     Active Substance: EFAVIRENZ
     Indication: HIV INFECTION
     Route: 065

REACTIONS (6)
  - Pyrexia [Unknown]
  - Weight decreased [Unknown]
  - Subcutaneous abscess [Unknown]
  - Decreased appetite [Unknown]
  - Pulmonary tuberculosis [Recovering/Resolving]
  - Product use in unapproved indication [Unknown]
